FAERS Safety Report 23338656 (Version 1)
Quarter: 2023Q4

REPORT INFORMATION
  Report Type: Report from Study
  Country: US (occurrence: US)
  Receive Date: 20231226
  Receipt Date: 20231226
  Transmission Date: 20240109
  Serious: Yes (Other)
  Sender: FDA-Public Use
  Company Number: US-TEVA-VS-3136359

PATIENT
  Age: 21 Year

DRUGS (1)
  1. CLARAVIS [Suspect]
     Active Substance: ISOTRETINOIN
     Indication: Product used for unknown indication
     Dosage: DURATION: 101 DAYS
     Route: 065
     Dates: start: 20230830, end: 20231208

REACTIONS (1)
  - Unintended pregnancy [Unknown]
